FAERS Safety Report 9839445 (Version 3)
Quarter: 2014Q2

REPORT INFORMATION
  Report Type: Spontaneous
  Country: US (occurrence: US)
  Receive Date: 20140124
  Receipt Date: 20140402
  Transmission Date: 20141212
  Serious: Yes (Other)
  Sender: FDA-Public Use
  Company Number: US-AMGEN-USASP2014004330

PATIENT
  Age: 80 Year
  Sex: Female

DRUGS (10)
  1. ENBREL [Suspect]
     Indication: RHEUMATOID ARTHRITIS
     Dosage: 50 MG, QWK
     Route: 058
     Dates: start: 20131105, end: 201401
  2. MTX                                /00113801/ [Concomitant]
     Dosage: 20 MG, QWK
     Route: 058
  3. AZATHIOPRINE [Concomitant]
     Dosage: 100 MG, QD
     Route: 048
     Dates: end: 20131105
  4. PLAQUENIL                          /00072602/ [Concomitant]
     Dosage: 200 MG, QD
  5. ASA [Concomitant]
     Dosage: 81 UNK, QD
  6. LIPITOR [Concomitant]
     Dosage: 20 MG, QD
     Route: 048
  7. ZOLOFT [Concomitant]
     Dosage: 50 MG, QD
     Route: 048
  8. ULTRAM                             /00599202/ [Concomitant]
     Dosage: 50 MG, TID
     Route: 048
  9. ZYRTEC [Concomitant]
     Dosage: 10 MG, QD
     Route: 048
  10. ZANAFLEX [Concomitant]
     Dosage: 4 MG, TID
     Route: 048

REACTIONS (3)
  - Squamous cell carcinoma of skin [Unknown]
  - Arthralgia [Recovering/Resolving]
  - Drug ineffective [Not Recovered/Not Resolved]
